FAERS Safety Report 9400067 (Version 2)
Quarter: 2014Q2

REPORT INFORMATION
  Report Type: Spontaneous
  Country: US (occurrence: None)
  Receive Date: 20130604
  Receipt Date: 20140407
  Transmission Date: 20141212
  Serious: Yes (Death, Other)
  Sender: FDA-Public Use
  Company Number: DSA_53171_2012

PATIENT
  Age: 64 Year
  Sex: Male

DRUGS (29)
  1. 5 FU [Suspect]
     Indication: COLORECTAL CANCER
     Dates: start: 20080328, end: 20080328
  2. OXALIPLATIN [Suspect]
     Indication: COLORECTAL CANCER
     Route: 041
     Dates: start: 20080328, end: 20080328
  3. LEUCOVORIN [Suspect]
     Indication: COLORECTAL CANCER
     Route: 041
  4. AVASTIN [Suspect]
     Indication: COLORECTAL CANCER
     Dates: start: 20080328, end: 20080328
  5. CALCIUM LEVOFOLINATE [Concomitant]
  6. GRANISETRON (GRANSETRON) (GRANISETRON) [Concomitant]
  7. DEXART DEXAMETHASONE SODIUM PHOSPHATE) (DEXAMETHASONE SODIUM PHOSPHATE) [Concomitant]
  8. SODIUM GUALENATE (SODIUM GUALENATE) (SODIUM GUALENATE) [Concomitant]
  9. DEXALTIN (DEXMETHASONE) (DEXAMETHASONE) [Concomitant]
  10. BESACOLIN (BETHANECHOL CHLORIDE) (BETHANECHOL CHLORIDE) [Concomitant]
  11. TAMSULOSIN HYDROCHLORIDE (TAMSULOSIN HYDROCHORIDE) (TAMSULOSIN HYDROCHLORIDE) [Concomitant]
  12. MUCOSOLVAN (AMBROXOL HYDROCHLORIDE) (AMBROXOL HYDROCHLORIDE) [Concomitant]
  13. BAKTAR (BACTRIM) (SULFAMETHOXAZOLE, TRIMETHOPRIM) [Concomitant]
  14. MEROPEN (MEROPENEM) (MERIPENEM) [Concomitant]
  15. MINOCYCLINE HYDROCHLORIDE (MINOCYCLINE HYDROCHLORIDE) (MINOCYCLONE HYDROCHLORIDE) [Concomitant]
  16. PREDONINE (PREDNISOLONE) (PREDNISOLONE) [Concomitant]
  17. SOLU-MEDROL (METHYLPREDNISOLONE SODIUM SUCCINATE) (METHYLPREDNISOLONE SODIUM SUCCINATE) [Concomitant]
  18. CEFTAZIDIME (CEFTAZIDIME) (CEFTAZIDIME) [Concomitant]
  19. FUNGUARD (MICAFUGIN SODIUM) (MICARFUGIN SODIUM) [Concomitant]
  20. TIENAM (PRIMAXIN) (IMIPENEN, CILASTATIN SODIUM) [Concomitant]
  21. DALACAN-S (CLINDAMYCIN PHOSPHATE) (CLINDAMCIN PHOSPHATE) [Concomitant]
  22. CIPROX (CIPROFLOXACIN) (CIPROFLOXACIN) [Concomitant]
  23. ROPION (FLURBIPROFEN AXETIL) (FLURBIPROFEN AXETIL) [Concomitant]
  24. GASTER (FAMOTIDINE) (FAMOTIDINE) [Concomitant]
  25. TRANSAMIN (TRANEXAMIC ACID) (TRANEXAMINC ACID) [Concomitant]
  26. MORPHINE HYDROCHLORIDE (MORPHINE HYDROCHLORIDE) [Concomitant]
  27. MIDAZOLAM (MIDAZOLAM) (MIDAZOLAM) [Concomitant]
  28. CRAVIT (LEVOFLOXACIN) (LEVOFLOXACIN) [Concomitant]
  29. CLARITHROMYCIN (CLARITHROMYCIN) (CLARITHROMYCIN) [Concomitant]

REACTIONS (21)
  - Interstitial lung disease [None]
  - Peripheral sensory neuropathy [None]
  - Respiratory failure [None]
  - Neurotoxicity [None]
  - Interstitial lung disease [None]
  - Decreased appetite [None]
  - Malaise [None]
  - Condition aggravated [None]
  - Stomatitis [None]
  - Pyrexia [None]
  - Neuropathy peripheral [None]
  - Activities of daily living impaired [None]
  - Pulmonary mass [None]
  - Interstitial lung disease [None]
  - Chlamydia test positive [None]
  - Respiratory distress [None]
  - Liver disorder [None]
  - Lymphocyte stimulation test positive [None]
  - Metastases to lung [None]
  - Malignant neoplasm progression [None]
  - Haemoptysis [None]
